FAERS Safety Report 15480976 (Version 3)
Quarter: 2019Q2

REPORT INFORMATION
  Report Type: Report from Study
  Country: None (occurrence: US)
  Receive Date: 20181010
  Receipt Date: 20190404
  Transmission Date: 20190711
  Serious: Yes (Other)
  Sender: FDA-Public Use
  Company Number: US-ABBVIE-18K-163-2512756-00

PATIENT
  Age: 66 Year
  Sex: Female

DRUGS (2)
  1. HUMIRA [Suspect]
     Active Substance: ADALIMUMAB
     Indication: RHEUMATOID ARTHRITIS
     Route: 058
     Dates: end: 2018
  2. HUMIRA [Suspect]
     Active Substance: ADALIMUMAB
     Indication: ANKYLOSING SPONDYLITIS
     Route: 058
     Dates: start: 201811

REACTIONS (6)
  - Chronic kidney disease [Unknown]
  - Hip arthroplasty [Unknown]
  - Post procedural infection [Unknown]
  - Fungal skin infection [Recovering/Resolving]
  - Hypertension [Unknown]
  - Influenza [Unknown]

NARRATIVE: CASE EVENT DATE: 2018
